FAERS Safety Report 7243007-1 (Version None)
Quarter: 2011Q1

REPORT INFORMATION
  Report Type: 
  Country: None (occurrence: None)
  Receive Date: 20110125
  Receipt Date: 20100827
  Transmission Date: 20110831
  Serious: No
  Sender: FDA-Public Use
  Company Number: US-AMGEN-KDL434427

PATIENT
  Age: 69 Year
  Sex: Female

DRUGS (10)
  1. CENTRUM SILVER [Concomitant]
     Dosage: UNK UNK, UNK
  2. GLUCOSAMINE W/CHONDROITIN SULFATES [Concomitant]
     Dosage: UNK UNK, UNK
  3. HYDROCHLOROTHIAZIDE [Concomitant]
     Dosage: UNK UNK, 3 TIMES/WK
  4. UNSPECIFIED MEDICATION [Concomitant]
     Dosage: UNK UNK, UNK
  5. CANDESARTAN CILEXETIL [Concomitant]
     Dosage: 32 MG, QD
  6. LEVOTHYROXINE SODIUM [Concomitant]
     Dosage: UNK UNK, QD
  7. ASCORBIC ACID [Concomitant]
     Dosage: UNK UNK, UNK
  8. PROLIA [Suspect]
     Indication: OSTEOPOROSIS POSTMENOPAUSAL
     Dosage: UNK UNK, UNK
     Dates: start: 20100824, end: 20100824
  9. CELECOXIB [Concomitant]
     Dosage: UNK UNK, UNK
  10. CITRACAL PLUS D [Concomitant]
     Dosage: UNK UNK, BID

REACTIONS (4)
  - BLOOD PRESSURE INCREASED [None]
  - HEADACHE [None]
  - CHEST DISCOMFORT [None]
  - HEART RATE INCREASED [None]
